FAERS Safety Report 10219164 (Version 1)
Quarter: 2014Q2

REPORT INFORMATION
  Report Type: Spontaneous
  Country: JP (occurrence: JP)
  Receive Date: 20140605
  Receipt Date: 20140605
  Transmission Date: 20141212
  Serious: Yes (Other)
  Sender: FDA-Public Use
  Company Number: JP-ACTAVIS-2014-11681

PATIENT
  Age: 73 Year
  Sex: Male
  Weight: 53 kg

DRUGS (1)
  1. PACLITAXEL (UNKNOWN) [Suspect]
     Indication: METASTASES TO PERITONEUM
     Dosage: 80 MG/M2, 1/WEEK, ON DAYS 1,8, 15, AND 28, EVERY 4 WEEKS
     Route: 065

REACTIONS (1)
  - Peripheral sensory neuropathy [Unknown]
